FAERS Safety Report 23388588 (Version 2)
Quarter: 2024Q1

REPORT INFORMATION
  Report Type: Spontaneous
  Country: ES (occurrence: ES)
  Receive Date: 20240110
  Receipt Date: 20240119
  Transmission Date: 20240409
  Serious: Yes (Hospitalization)
  Sender: FDA-Public Use
  Company Number: ES-AMGEN-ESPSP2023162195

PATIENT
  Age: 41 Year
  Sex: Male

DRUGS (1)
  1. ADALIMUMAB [Suspect]
     Active Substance: ADALIMUMAB\ISOPROPYL ALCOHOL
     Indication: Axial spondyloarthritis
     Dosage: 40 MILLIGRAM, Q2WK
     Route: 065
     Dates: start: 2021, end: 202108

REACTIONS (3)
  - Haemophagocytic lymphohistiocytosis [Unknown]
  - Visceral leishmaniasis [Recovered/Resolved]
  - Axial spondyloarthritis [Recovering/Resolving]

NARRATIVE: CASE EVENT DATE: 20210101
